FAERS Safety Report 9432416 (Version 2)
Quarter: 2013Q3

REPORT INFORMATION
  Report Type: Spontaneous
  Country: US (occurrence: US)
  Receive Date: 20130731
  Receipt Date: 20130801
  Transmission Date: 20140515
  Serious: No
  Sender: FDA-Public Use
  Company Number: US-009507513-1307USA012004

PATIENT
  Age: 77 Year
  Sex: Male
  Weight: 88.89 kg

DRUGS (4)
  1. CLARITIN [Suspect]
     Indication: EAR CONGESTION
     Dosage: 5 MG, PRN
     Route: 048
     Dates: start: 20130617
  2. CLARITIN [Suspect]
     Indication: RESPIRATORY TRACT CONGESTION
  3. CLARITIN [Suspect]
     Indication: EYE PRURITUS
  4. CRESTOR [Concomitant]
     Indication: PRODUCT USED FOR UNKNOWN INDICATION
     Dosage: 20 MG, TIW

REACTIONS (3)
  - Depression [Recovered/Resolved]
  - Drug effect increased [Unknown]
  - Underdose [Unknown]
